FAERS Safety Report 19046952 (Version 1)
Quarter: 2021Q1

REPORT INFORMATION
  Report Type: Report from Study
  Country: None (occurrence: US)
  Receive Date: 20210322
  Receipt Date: 20210322
  Transmission Date: 20210420
  Serious: Yes (Other)
  Sender: FDA-Public Use
  Company Number: US-ABBVIE-21K-163-3744599-00

PATIENT
  Age: 83 Year
  Sex: Female
  Weight: 64.92 kg

DRUGS (3)
  1. COVID?19 VACCINE [Concomitant]
     Indication: COVID-19 IMMUNISATION
     Dosage: MODERNA
     Route: 030
     Dates: start: 20210203, end: 20210203
  2. COVID?19 VACCINE [Concomitant]
     Dosage: MODERNA
     Route: 030
     Dates: start: 20210303, end: 20210303
  3. HUMIRA [Suspect]
     Active Substance: ADALIMUMAB
     Indication: RHEUMATOID ARTHRITIS
     Route: 058
     Dates: start: 201906

REACTIONS (3)
  - Retinal haemorrhage [Recovered/Resolved]
  - Lens dislocation [Recovered/Resolved]
  - Blindness unilateral [Recovered/Resolved]

NARRATIVE: CASE EVENT DATE: 202008
